FAERS Safety Report 7953722-X (Version None)
Quarter: 2011Q4

REPORT INFORMATION
  Report Type: 
  Country: None (occurrence: None)
  Receive Date: 20111202
  Receipt Date: 20111129
  Transmission Date: 20120403
  Serious: Yes (Death, Other)
  Sender: FDA-Public Use
  Company Number: US-VERTEX PHARMACEUTICALS INC.-AE-2011-003455

PATIENT
  Sex: Male
  Weight: 135.29 kg

DRUGS (13)
  1. MOVIPREP [Concomitant]
     Route: 048
  2. COREG [Concomitant]
     Route: 048
  3. RIBAVIRIN [Concomitant]
     Indication: HEPATITIS C
     Dates: end: 20111115
  4. DIGOXIN [Concomitant]
     Route: 048
  5. FUROSEMIDE [Concomitant]
     Route: 048
  6. INCIVEK [Suspect]
     Indication: HEPATITIS C
     Route: 048
     Dates: start: 20111111, end: 20111115
  7. POTASSIUM CHLORIDE [Concomitant]
     Route: 048
  8. ALLOPURINOL [Concomitant]
     Route: 048
  9. PEGINTERFERON ALFA-2A [Concomitant]
     Indication: HEPATITIS C
     Dates: end: 20111115
  10. COUMADIN [Concomitant]
     Route: 048
  11. DIOVAN [Concomitant]
     Route: 048
  12. MINOXIDIL [Concomitant]
  13. INSPRA [Concomitant]

REACTIONS (2)
  - DYSPNOEA [None]
  - CARDIAC ARREST [None]
